FAERS Safety Report 14802316 (Version 1)
Quarter: 2018Q2

REPORT INFORMATION
  Report Type: Spontaneous
  Country: US (occurrence: US)
  Receive Date: 20180424
  Receipt Date: 20180424
  Transmission Date: 20180711
  Serious: Yes (Other)
  Sender: FDA-Public Use
  Company Number: US-NAPPMUNDI-USA-2018-0142915

PATIENT
  Sex: Female

DRUGS (3)
  1. FENTANYL                           /00174602/ [Suspect]
     Active Substance: FENTANYL
     Dosage: UNK
     Route: 062
  2. OXYCODONE HYDROCHLORIDE (SIMILAR TO NDA 22-272) [Suspect]
     Active Substance: OXYCODONE HYDROCHLORIDE
     Indication: PAIN
     Dosage: UNK
     Route: 048
     Dates: end: 20171216
  3. FENTANYL                           /00174602/ [Suspect]
     Active Substance: FENTANYL
     Indication: PAIN
     Dosage: UNK
     Route: 048

REACTIONS (6)
  - Drug withdrawal syndrome [Unknown]
  - Drug tolerance [Unknown]
  - Nausea [Unknown]
  - Drug dependence [Unknown]
  - Drug abuse [Unknown]
  - Dizziness [Unknown]

NARRATIVE: CASE EVENT DATE: 20171216
